FAERS Safety Report 15763986 (Version 6)
Quarter: 2020Q2

REPORT INFORMATION
  Report Type: Spontaneous
  Country: CA (occurrence: CA)
  Receive Date: 20181227
  Receipt Date: 20200519
  Transmission Date: 20200713
  Serious: Yes (Other)
  Sender: FDA-Public Use
  Company Number: CA-ROCHE-2234541

PATIENT
  Age: 65 Year
  Sex: Female

DRUGS (3)
  1. XOLAIR [Suspect]
     Active Substance: OMALIZUMAB
     Route: 058
     Dates: start: 20180202
  2. XOLAIR [Suspect]
     Active Substance: OMALIZUMAB
     Route: 058
     Dates: start: 201812, end: 201910
  3. XOLAIR [Suspect]
     Active Substance: OMALIZUMAB
     Indication: ASTHMA
     Route: 058
     Dates: start: 20131104

REACTIONS (16)
  - Oropharyngeal pain [Unknown]
  - Nasopharyngitis [Unknown]
  - Nasal congestion [Unknown]
  - Chest discomfort [Unknown]
  - Hypersensitivity [Unknown]
  - Cough [Unknown]
  - Sensitivity to weather change [Unknown]
  - Asthma [Unknown]
  - Dust allergy [Unknown]
  - Vomiting [Unknown]
  - Drug intolerance [Unknown]
  - Influenza like illness [Unknown]
  - Perfume sensitivity [Unknown]
  - Wheezing [Unknown]
  - Influenza [Unknown]
  - Diabetes mellitus [Unknown]

NARRATIVE: CASE EVENT DATE: 20131202
